FAERS Safety Report 14777241 (Version 4)
Quarter: 2019Q1

REPORT INFORMATION
  Report Type: Report from Study
  Country: US (occurrence: US)
  Receive Date: 20180419
  Receipt Date: 20190315
  Transmission Date: 20190417
  Serious: Yes (Other)
  Sender: FDA-Public Use
  Company Number: US-AMGEN-USASL2018050792

PATIENT
  Age: 75 Year
  Sex: Male
  Weight: 66.03 kg

DRUGS (10)
  1. NICOTINE. [Concomitant]
     Active Substance: NICOTINE
     Dosage: 14 MG, QD
     Route: 062
  2. OMEPRAZOLE. [Concomitant]
     Active Substance: OMEPRAZOLE
     Dosage: 40 MG, QD
     Route: 048
  3. STERAPRED DS [Concomitant]
     Dosage: UNK
  4. DOCUSATE SODIUM. [Concomitant]
     Active Substance: DOCUSATE SODIUM
     Dosage: 50 MG, BID
     Route: 048
  5. ENBREL [Suspect]
     Active Substance: ETANERCEPT
     Indication: PSORIASIS
     Dosage: 50 MG, QWK
     Route: 065
  6. LIDOCAINE. [Concomitant]
     Active Substance: LIDOCAINE
     Dosage: UNK, FOUR TIMES A DAY
     Route: 061
  7. WELLBUTRIN [Suspect]
     Active Substance: BUPROPION HYDROCHLORIDE
     Indication: PRODUCT USED FOR UNKNOWN INDICATION
     Dosage: UNK
     Route: 065
  8. WELLBUTRIN [Suspect]
     Active Substance: BUPROPION HYDROCHLORIDE
     Dosage: 150 MG, BID
     Route: 065
  9. WELLBUTRIN [Suspect]
     Active Substance: BUPROPION HYDROCHLORIDE
     Dosage: 100 MG, QD
     Route: 065
  10. CETRIZINE [Concomitant]
     Active Substance: CETIRIZINE HYDROCHLORIDE
     Dosage: 10 MG, QD
     Route: 048

REACTIONS (11)
  - Lung neoplasm malignant [Unknown]
  - Laryngitis [Unknown]
  - Viral upper respiratory tract infection [Unknown]
  - Tremor [Unknown]
  - Balance disorder [Unknown]
  - Constipation [Unknown]
  - Adjustment disorder with mixed anxiety and depressed mood [Unknown]
  - Hyperhidrosis [Unknown]
  - Non-small cell lung cancer [Unknown]
  - Nicotine dependence [Unknown]
  - Gastrooesophageal reflux disease [Recovered/Resolved]

NARRATIVE: CASE EVENT DATE: 2018
